FAERS Safety Report 23810260 (Version 1)
Quarter: 2024Q2

REPORT INFORMATION
  Report Type: Spontaneous
  Country: CN (occurrence: CN)
  Receive Date: 20240502
  Receipt Date: 20240502
  Transmission Date: 20240716
  Serious: Yes (Other)
  Sender: FDA-Public Use
  Company Number: CN-ELI_LILLY_AND_COMPANY-CN202404015599

PATIENT
  Age: 40 Year
  Sex: Female

DRUGS (3)
  1. RAMUCIRUMAB [Suspect]
     Active Substance: RAMUCIRUMAB
     Indication: Gastric cancer
     Dosage: 430 MG, DAILY, IN-PUMP INJECTION
     Route: 065
     Dates: start: 20240402, end: 20240402
  2. PACLITAXEL [Suspect]
     Active Substance: PACLITAXEL
     Indication: Gastric cancer
     Dosage: 200 MG, DAILY,IN-PUMP INJECTION
     Route: 065
     Dates: start: 20240402, end: 20240402
  3. SODIUM CHLORIDE [Concomitant]
     Active Substance: SODIUM CHLORIDE
     Indication: Product used for unknown indication
     Dosage: 250 MG, SINGLE,IN-PUMP INJECTION
     Route: 065
     Dates: start: 20240402, end: 20240402

REACTIONS (1)
  - Myelosuppression [Recovering/Resolving]

NARRATIVE: CASE EVENT DATE: 20240417
